FAERS Safety Report 16299346 (Version 1)
Quarter: 2019Q2

REPORT INFORMATION
  Report Type: Spontaneous
  Country: US (occurrence: US)
  Receive Date: 20190510
  Receipt Date: 20190510
  Transmission Date: 20190711
  Serious: No
  Sender: FDA-Public Use
  Company Number: US-009507513-1905USA000428

PATIENT
  Age: 42 Year
  Sex: Male

DRUGS (1)
  1. STEGLATRO [Suspect]
     Active Substance: ERTUGLIFLOZIN PIDOLATE
     Indication: BLOOD GLUCOSE INCREASED
     Dosage: ONE TABLET DAILY
     Route: 048
     Dates: start: 201904

REACTIONS (2)
  - Myalgia [Unknown]
  - Back pain [Unknown]

NARRATIVE: CASE EVENT DATE: 201904
